FAERS Safety Report 8434684-8 (Version None)
Quarter: 2012Q2

REPORT INFORMATION
  Report Type: 
  Country: None (occurrence: None)
  Receive Date: 20120323
  Receipt Date: 20110923
  Transmission Date: 20120825
  Serious: Yes (Disabling)
  Sender: FDA-Public Use
  Company Number: 163-21880-11070204

PATIENT
  Age: 59 Year
  Sex: Male

DRUGS (3)
  1. REVLIMID [Suspect]
     Indication: MULTIPLE MYELOMA
     Dosage: 25 MG, DAILY FOR 21 DAYS ON, 7 DAYS OFF Q28D, PO, 15 MG, QOD, PO
     Route: 048
     Dates: start: 20110614, end: 20110628
  2. REVLIMID [Suspect]
     Indication: MULTIPLE MYELOMA
     Dosage: 25 MG, DAILY FOR 21 DAYS ON, 7 DAYS OFF Q28D, PO, 15 MG, QOD, PO
     Route: 048
     Dates: start: 20110701
  3. ZOMETA [Concomitant]

REACTIONS (5)
  - FATIGUE [None]
  - MUSCLE SPASMS [None]
  - PAIN [None]
  - NAUSEA [None]
  - HEADACHE [None]
